FAERS Safety Report 8265396-1 (Version None)
Quarter: 2012Q2

REPORT INFORMATION
  Report Type: 
  Country: None (occurrence: None)
  Receive Date: 20120406
  Receipt Date: 20120330
  Transmission Date: 20120825
  Serious: Yes (Other)
  Sender: FDA-Public Use
  Company Number: BR-PFIZER INC-2012076240

PATIENT
  Age: 46 Year
  Sex: Female
  Weight: 79 kg

DRUGS (4)
  1. LOSARTAN [Concomitant]
     Dosage: 1 DF, DAILY
  2. SUTENT [Suspect]
     Indication: RENAL CANCER
     Dosage: 50 MG, 1X/DAY (FIRST CYCLE, THIRD WEEK)
     Route: 048
     Dates: start: 20120316
  3. HYGROTON [Concomitant]
     Dosage: 1 DF (25 MG TABLET), DAILY
  4. METOPROLOL TARTRATE [Concomitant]
     Dosage: 0.5 DF, DAILY

REACTIONS (23)
  - ANAL HAEMORRHAGE [None]
  - DYSGEUSIA [None]
  - BACK PAIN [None]
  - STOMATITIS [None]
  - ABNORMAL FAECES [None]
  - DISEASE PROGRESSION [None]
  - APHTHOUS STOMATITIS [None]
  - RENAL CANCER [None]
  - NOCTURIA [None]
  - EMOTIONAL DISORDER [None]
  - PAIN [None]
  - GENITAL BURNING SENSATION [None]
  - PAIN IN EXTREMITY [None]
  - OEDEMA PERIPHERAL [None]
  - GAIT DISTURBANCE [None]
  - DECREASED APPETITE [None]
  - EATING DISORDER [None]
  - SKIN BURNING SENSATION [None]
  - DISCOMFORT [None]
  - CRYING [None]
  - HUNGER [None]
  - HYPERTENSION [None]
  - ANORECTAL DISORDER [None]
